FAERS Safety Report 8525336-4 (Version None)
Quarter: 2012Q3

REPORT INFORMATION
  Report Type: 
  Country: None (occurrence: None)
  Receive Date: 20120720
  Receipt Date: 20120718
  Transmission Date: 20120928
  Serious: Yes (Disabling)
  Sender: FDA-Public Use
  Company Number: PHHY2012NO061720

PATIENT
  Sex: Male

DRUGS (6)
  1. ZOMETA [Suspect]
     Indication: MULTIPLE MYELOMA
     Dosage: UNK UKN, UNK
     Route: 065
  2. CITALOPRAM HYDROBROMIDE [Concomitant]
     Dosage: UNK UKN, UNK
     Route: 065
  3. SIMVASTATIN [Concomitant]
     Dosage: UNK UKN, UNK
     Route: 065
  4. WARFARIN SODIUM [Concomitant]
     Dosage: UNK UKN, UNK
     Route: 065
  5. METOPROLOL SUCCINATE [Concomitant]
     Dosage: UNK UKN, UNK
     Route: 065
  6. THALIDOMIDE [Concomitant]
     Dosage: UNK UKN, UNK
     Route: 065

REACTIONS (1)
  - OSTEONECROSIS OF JAW [None]
